FAERS Safety Report 7063106-7 (Version None)
Quarter: 2010Q4

REPORT INFORMATION
  Report Type: 
  Country: None (occurrence: None)
  Receive Date: 20101026
  Receipt Date: 20100419
  Transmission Date: 20110411
  Serious: No
  Sender: FDA-Public Use
  Company Number: US-PFIZER INC-2010049766

PATIENT
  Sex: Female

DRUGS (2)
  1. LIPITOR [Suspect]
  2. GRAPEFRUIT JUICE [Concomitant]
     Dosage: EVERYDAY

REACTIONS (1)
  - PANIC REACTION [None]
